FAERS Safety Report 23741470 (Version 1)
Quarter: 2024Q2

REPORT INFORMATION
  Report Type: Spontaneous
  Country: US (occurrence: US)
  Receive Date: 20240415
  Receipt Date: 20240415
  Transmission Date: 20240716
  Serious: No
  Sender: FDA-Public Use
  Company Number: US-JNJFOC-20240412592

PATIENT
  Age: 47 Year
  Sex: Female

DRUGS (1)
  1. WOMENS ROGAINE UNSCENTED [Suspect]
     Active Substance: MINOXIDIL
     Indication: Alopecia
     Dosage: 1/2 CAP
     Route: 061
     Dates: start: 20240327, end: 2024

REACTIONS (1)
  - Application site pruritus [Recovering/Resolving]

NARRATIVE: CASE EVENT DATE: 20240327
